FAERS Safety Report 16321524 (Version 2)
Quarter: 2019Q3

REPORT INFORMATION
  Report Type: Spontaneous
  Country: JP (occurrence: JP)
  Receive Date: 20190516
  Receipt Date: 20190919
  Transmission Date: 20191004
  Serious: Yes (Hospitalization, Other)
  Sender: FDA-Public Use
  Company Number: JP-PFIZER INC-2019200636

PATIENT
  Age: 48 Year
  Sex: Male
  Weight: 72.4 kg

DRUGS (3)
  1. ETIZOLAM [Suspect]
     Active Substance: ETIZOLAM
     Dosage: APPROXIMATELY 20 TABLETS
     Route: 048
     Dates: start: 20190510, end: 20190510
  2. LYRICA [Suspect]
     Active Substance: PREGABALIN
     Indication: NEURALGIA
     Dosage: 200 MG, 2X/DAY
     Route: 048
  3. LYRICA [Suspect]
     Active Substance: PREGABALIN
     Dosage: GREATER THAN 1800 MG IN LESS THAN A DAY (APPROXIMATELY 20 TABLETS)
     Route: 048
     Dates: start: 20190510, end: 20190510

REACTIONS (5)
  - Overdose [Unknown]
  - Toxicity to various agents [Recovered/Resolved]
  - Confusional state [Unknown]
  - Blood alkaline phosphatase increased [Unknown]
  - Monocyte percentage increased [Unknown]

NARRATIVE: CASE EVENT DATE: 20190510
